FAERS Safety Report 19459934 (Version 1)
Quarter: 2021Q2

REPORT INFORMATION
  Report Type: Report from Study
  Country: US (occurrence: US)
  Receive Date: 20210625
  Receipt Date: 20210625
  Transmission Date: 20210717
  Serious: Yes (Other)
  Sender: FDA-Public Use
  Company Number: US-GILEAD-2021-0535475

PATIENT
  Age: 66 Year
  Sex: Male

DRUGS (1)
  1. BICTEGRAVIR W/EMTRICITABINE/TENOFOVIR ALAFENAMIDE [Suspect]
     Active Substance: BICTEGRAVIR\EMTRICITABINE\TENOFOVIR ALAFENAMIDE
     Indication: HIV INFECTION
     Dosage: UNK
     Route: 065
     Dates: start: 201802, end: 202105

REACTIONS (6)
  - Depressed mood [Not Recovered/Not Resolved]
  - Hypophagia [Not Recovered/Not Resolved]
  - Intentional product use issue [Not Recovered/Not Resolved]
  - Fatigue [Not Recovered/Not Resolved]
  - Prostate cancer stage IV [Not Recovered/Not Resolved]
  - Feelings of worthlessness [Not Recovered/Not Resolved]

NARRATIVE: CASE EVENT DATE: 202105
